FAERS Safety Report 5792020-X (Version None)
Quarter: 2008Q2

REPORT INFORMATION
  Report Type: 
  Country: None (occurrence: None)
  Receive Date: 20080626
  Receipt Date: 20080618
  Transmission Date: 20081010
  Serious: Yes (Other)
  Sender: FDA-Public Use
  Company Number: US-SANOFI-SYNTHELABO-A03200802425

PATIENT
  Age: 71 Year
  Sex: Male

DRUGS (1)
  1. PLAVIX [Suspect]
     Indication: STENT PLACEMENT
     Route: 048
     Dates: start: 20070101

REACTIONS (3)
  - PHOTOPSIA [None]
  - RETINAL TEAR [None]
  - VITREOUS FLOATERS [None]
